FAERS Safety Report 8415063-6 (Version None)
Quarter: 2012Q2

REPORT INFORMATION
  Report Type: 
  Country: None (occurrence: None)
  Receive Date: 20120606
  Receipt Date: 20120531
  Transmission Date: 20120825
  Serious: No
  Sender: FDA-Public Use
  Company Number: BR-JNJFOC-20120601144

PATIENT
  Age: 79 Year
  Sex: Female
  Weight: 48 kg

DRUGS (10)
  1. HYOSCINE HBR HYT [Suspect]
     Indication: PRODUCT USED FOR UNKNOWN INDICATION
     Route: 065
  2. DURAGESIC-100 [Suspect]
     Indication: CANCER PAIN
     Route: 062
     Dates: start: 20120301
  3. TRAMADOL HYDROCHLORIDE [Concomitant]
     Route: 065
  4. LUFTAL [Concomitant]
     Route: 065
  5. ALDACTONE [Concomitant]
     Route: 065
  6. LAMOTRIGINE [Concomitant]
     Dosage: REPORTED DRUG NAME: LAMITOR
     Route: 065
  7. ZOLPIDEM [Concomitant]
     Route: 065
  8. PANTOPRAZOLE [Concomitant]
     Route: 065
  9. MIRTAZAPINE [Concomitant]
     Dosage: REPORTED DRUG NAME: RAZAPINA
     Route: 065
  10. ATENOLOL [Concomitant]
     Route: 065

REACTIONS (3)
  - PRODUCT QUALITY ISSUE [None]
  - PAIN [None]
  - WRONG TECHNIQUE IN DRUG USAGE PROCESS [None]
